FAERS Safety Report 5706746-7 (Version None)
Quarter: 2008Q2

REPORT INFORMATION
  Report Type: 
  Country: None (occurrence: None)
  Receive Date: 20080414
  Receipt Date: 20080414
  Transmission Date: 20081010
  Serious: Yes (Hospitalization)
  Sender: FDA-Public Use
  Company Number: None

PATIENT
  Sex: Female
  Weight: 85.45 kg

DRUGS (3)
  1. CISPLATIN [Suspect]
     Dosage: 93 MG
  2. DOXORUBICIN HYDROCHLORIDE [Suspect]
     Dosage: 84 MG
  3. TAXOL [Suspect]
     Dosage: 298 MG

REACTIONS (4)
  - BLOOD CREATININE INCREASED [None]
  - HAEMOGLOBIN DECREASED [None]
  - NAUSEA [None]
  - VOMITING [None]
